FAERS Safety Report 7710950-6 (Version None)
Quarter: 2011Q3

REPORT INFORMATION
  Report Type: 
  Country: None (occurrence: None)
  Receive Date: 20110825
  Receipt Date: 20110822
  Transmission Date: 20111222
  Serious: Yes (Other)
  Sender: FDA-Public Use
  Company Number: JP-MERCK-1108USA03021

PATIENT

DRUGS (1)
  1. STROMECTOL [Suspect]
     Route: 048

REACTIONS (1)
  - CARDIAC FAILURE [None]
